FAERS Safety Report 4445800-7 (Version None)
Quarter: 2004Q3

REPORT INFORMATION
  Report Type: 
  Country: None (occurrence: None)
  Receive Date: 20040902
  Receipt Date: 20040818
  Transmission Date: 20050211
  Serious: Yes (Hospitalization, Disabling)
  Sender: FDA-Public Use
  Company Number: 2004EU001555

PATIENT
  Sex: Female

DRUGS (9)
  1. PROGRAF [Suspect]
     Indication: RENAL TRANSPLANT
     Dosage: 2.00 MG, D, ORAL
     Route: 048
     Dates: start: 20030904, end: 20040706
  2. MYCOPHENOLATE MOFETIL (MYCOPHENOLATE MOFETIL) [Concomitant]
  3. PREDNISONE [Concomitant]
  4. CALCITRIOL [Concomitant]
  5. CALCIMAGON-D3 (COLECALCIFEROL, CALCIUM CARBONATE) [Concomitant]
  6. INSULATARD NPH HUMAN [Concomitant]
  7. LAMIVUDINE (LAMIVUDINE) [Concomitant]
  8. ACENOCOUMAROL (ACENOCOUMAROL) [Concomitant]
  9. SIROLIMUS (SIROLIMUS) [Concomitant]

REACTIONS (3)
  - HALLUCINATION, AUDITORY [None]
  - HALLUCINATION, VISUAL [None]
  - PARANOIA [None]
